FAERS Safety Report 9143627 (Version 2)
Quarter: 2013Q2

REPORT INFORMATION
  Report Type: Spontaneous
  Country: DE (occurrence: DE)
  Receive Date: 20130306
  Receipt Date: 20130423
  Transmission Date: 20140414
  Serious: Yes (Other)
  Sender: FDA-Public Use
  Company Number: DE-ROCHE-1198249

PATIENT
  Age: 73 Year
  Sex: Female

DRUGS (4)
  1. PEGASYS [Suspect]
     Indication: HEPATITIS C
     Route: 058
     Dates: start: 20100118, end: 20101212
  2. COPEGUS [Suspect]
     Indication: HEPATITIS C
     Route: 048
     Dates: start: 20100118, end: 20101212
  3. L-THYROXIN [Concomitant]
     Indication: HYPOTHYROIDISM
     Route: 048
  4. DOCITON [Concomitant]
     Indication: HYPERTENSION
     Route: 048

REACTIONS (1)
  - B-cell lymphoma [Unknown]
